FAERS Safety Report 7432360-1 (Version None)
Quarter: 2011Q2

REPORT INFORMATION
  Report Type: 
  Country: None (occurrence: None)
  Receive Date: 20110422
  Receipt Date: 20110419
  Transmission Date: 20111010
  Serious: Yes (Death)
  Sender: FDA-Public Use
  Company Number: PHHY2011GR32811

PATIENT
  Age: 72 Year
  Sex: Male

DRUGS (3)
  1. TASIGNA [Suspect]
     Indication: MASTOCYTOSIS
     Dosage: UNK
     Dates: start: 20110201, end: 20110201
  2. ZYLORIC ^FRESENIUS^ [Concomitant]
  3. TAVANIC [Concomitant]

REACTIONS (2)
  - TOXIC EPIDERMAL NECROLYSIS [None]
  - RASH [None]
